FAERS Safety Report 7705499-0 (Version None)
Quarter: 2011Q3

REPORT INFORMATION
  Report Type: 
  Country: None (occurrence: None)
  Receive Date: 20110818
  Receipt Date: 20110803
  Transmission Date: 20111222
  Serious: Yes (Life-Threatening, Hospitalization)
  Sender: FDA-Public Use
  Company Number: 2011MA011660

PATIENT
  Age: 23 Year
  Sex: Female

DRUGS (4)
  1. IBUPROFEN [Suspect]
     Dosage: 1 DF; TID; TOP
     Route: 061
     Dates: start: 20110712, end: 20110719
  2. PHENOXMETHYLPENCILLIN [Concomitant]
  3. ACETAMINOPHEN [Concomitant]
  4. NTROFLURANTOIN [Concomitant]

REACTIONS (4)
  - SWELLING FACE [None]
  - WHEEZING [None]
  - LIP SWELLING [None]
  - DYSPNOEA [None]
